FAERS Safety Report 5909484-0 (Version None)
Quarter: 2008Q4

REPORT INFORMATION
  Report Type: 
  Country: None (occurrence: None)
  Receive Date: 20081006
  Receipt Date: 20080924
  Transmission Date: 20090506
  Serious: Yes (Death, Other)
  Sender: FDA-Public Use
  Company Number: US-PFIZER INC-2008082104

PATIENT
  Sex: Female
  Weight: 149.7 kg

DRUGS (4)
  1. LYRICA [Suspect]
     Indication: PAIN
     Dosage: FREQ:DAILY
     Route: 048
     Dates: start: 20071001
  2. XANAX [Interacting]
     Dosage: FREQ:DAILY
     Route: 048
     Dates: start: 20070901
  3. METHADONE HCL [Interacting]
     Route: 048
     Dates: start: 20070601
  4. HYDROCODONE BITARTRATE [Interacting]
     Dosage: TEXT:EVERY DAY-FREQ:DAILY
     Route: 048
     Dates: start: 20070801

REACTIONS (3)
  - DRUG INTERACTION [None]
  - EMOTIONAL DISORDER [None]
  - FEELING ABNORMAL [None]
